FAERS Safety Report 10762926 (Version 2)
Quarter: 2015Q1

REPORT INFORMATION
  Report Type: Spontaneous
  Country: US (occurrence: US)
  Receive Date: 20150204
  Receipt Date: 20150319
  Transmission Date: 20150721
  Serious: Yes (Hospitalization, Other)
  Sender: FDA-Public Use
  Company Number: US-BAYER-2015-016811

PATIENT
  Age: 37 Year
  Sex: Female

DRUGS (2)
  1. BENAZEPRIL [Concomitant]
     Active Substance: BENAZEPRIL\BENAZEPRIL HYDROCHLORIDE
     Dosage: 20 MG, QD
     Dates: start: 20090914
  2. MIRENA [Suspect]
     Active Substance: LEVONORGESTREL
     Dosage: 20 MCG/24HR, CONT
     Route: 015
     Dates: start: 20040916, end: 20090920

REACTIONS (16)
  - Medical device discomfort [None]
  - Pelvic pain [None]
  - Injury [None]
  - Complication of device removal [None]
  - Depression [None]
  - Depressed mood [None]
  - Uterine perforation [None]
  - Genital haemorrhage [None]
  - Emotional distress [None]
  - Abdominal pain [None]
  - Anxiety [None]
  - Device breakage [None]
  - Fear [None]
  - Pelvic inflammatory disease [None]
  - Internal injury [None]
  - Device difficult to use [None]

NARRATIVE: CASE EVENT DATE: 200909
